FAERS Safety Report 24123919 (Version 1)
Quarter: 2024Q3

REPORT INFORMATION
  Report Type: Spontaneous
  Country: US (occurrence: US)
  Receive Date: 20240723
  Receipt Date: 20240723
  Transmission Date: 20241017
  Serious: No
  Sender: OTSUKA
  Company Number: US-OTSUKA-2024_016928

PATIENT
  Sex: Female

DRUGS (1)
  1. REXULTI [Suspect]
     Active Substance: BREXPIPRAZOLE
     Indication: Agitation
     Dosage: 2 MG
     Route: 065
     Dates: start: 2023

REACTIONS (6)
  - General physical health deterioration [Unknown]
  - Mobility decreased [Unknown]
  - Fall [Unknown]
  - Extrapyramidal disorder [Unknown]
  - Tremor [Unknown]
  - Therapeutic response shortened [Unknown]

NARRATIVE: CASE EVENT DATE: 20230101
